FAERS Safety Report 10525132 (Version 3)
Quarter: 2014Q4

REPORT INFORMATION
  Report Type: Spontaneous
  Country: JP (occurrence: JP)
  Receive Date: 20141017
  Receipt Date: 20141219
  Transmission Date: 20150528
  Serious: Yes (Hospitalization)
  Sender: FDA-Public Use
  Company Number: JP-ASTRAZENECA-2014SE76706

PATIENT
  Age: 83 Year
  Sex: Male

DRUGS (7)
  1. PLAVIX [Suspect]
     Active Substance: CLOPIDOGREL BISULFATE
     Route: 048
     Dates: start: 20110928, end: 20130813
  2. DIOVAN [Suspect]
     Active Substance: VALSARTAN
     Route: 048
     Dates: start: 20110928, end: 20130813
  3. MAINTATE [Suspect]
     Active Substance: BISOPROLOL FUMARATE
     Route: 048
     Dates: start: 20110928, end: 20130813
  4. SIGMART [Suspect]
     Active Substance: NICORANDIL
     Route: 048
     Dates: start: 20110928, end: 20130813
  5. NITRODERM [Suspect]
     Active Substance: NITROGLYCERIN
     Route: 048
     Dates: start: 20110928, end: 20130813
  6. EVEROLIMUS [Concomitant]
     Active Substance: EVEROLIMUS
     Dosage: TWO TIMES IN TOTAL IN OCT 2011 AND APR 2012
  7. CRESTOR [Suspect]
     Active Substance: ROSUVASTATIN CALCIUM
     Route: 048
     Dates: start: 20110928, end: 20130813

REACTIONS (4)
  - Drug hypersensitivity [Recovered/Resolved]
  - Arterial injury [Recovered/Resolved]
  - Drug reaction with eosinophilia and systemic symptoms [Recovered/Resolved]
  - Coronary artery restenosis [Recovered/Resolved]

NARRATIVE: CASE EVENT DATE: 201308
